FAERS Safety Report 4456859-5 (Version None)
Quarter: 2004Q3

REPORT INFORMATION
  Report Type: 
  Country: None (occurrence: None)
  Receive Date: 20040921
  Receipt Date: 20040908
  Transmission Date: 20050211
  Serious: Yes (Death)
  Sender: FDA-Public Use
  Company Number: 2004S1000131

PATIENT
  Age: 26 Year
  Sex: Female

DRUGS (4)
  1. CUBICIN [Suspect]
     Indication: ENTEROCOCCAL BACTERAEMIA
     Dosage: 10 MG/KG; Q24H; IV
     Route: 042
     Dates: start: 20040501, end: 20040609
  2. CHLORAMPHENICOL [Concomitant]
  3. IMIPENEM [Concomitant]
  4. QUINUPRISTIN/DALFOPRISTIN [Concomitant]

REACTIONS (4)
  - BACTERIAL INFECTION [None]
  - DRUG EFFECT DECREASED [None]
  - FUNGAEMIA [None]
  - GASTROINTESTINAL INFECTION [None]
